FAERS Safety Report 19705860 (Version 5)
Quarter: 2021Q3

REPORT INFORMATION
  Report Type: Spontaneous
  Country: US (occurrence: US)
  Receive Date: 20210817
  Receipt Date: 20210930
  Transmission Date: 20211014
  Serious: Yes (Other)
  Sender: FDA-Public Use
  Company Number: US-BEH-2021134890

PATIENT
  Age: 22 Year
  Sex: Female
  Weight: 44.5 kg

DRUGS (7)
  1. DIPHENHYDRAMINE. [Concomitant]
     Active Substance: DIPHENHYDRAMINE
     Dosage: 25 MILLIGRAM, SINGLE
     Route: 048
     Dates: start: 20210809, end: 20210809
  2. PRIVIGEN [Suspect]
     Active Substance: HUMAN IMMUNOGLOBULIN G
     Dosage: 50 GRAM
     Route: 041
     Dates: start: 20210702, end: 20210702
  3. ACETAMINOPHEN. [Concomitant]
     Active Substance: ACETAMINOPHEN
     Dosage: 650 MILLIGRAM, SINGLE
     Route: 048
     Dates: start: 20210809, end: 20210809
  4. PRIVIGEN [Suspect]
     Active Substance: HUMAN IMMUNOGLOBULIN G
     Dosage: 50 GRAM
     Route: 041
     Dates: start: 20210704, end: 20210704
  5. PRIVIGEN [Suspect]
     Active Substance: HUMAN IMMUNOGLOBULIN G
     Dosage: 50 GRAM
     Route: 041
     Dates: start: 20210806, end: 20210806
  6. METHYLPREDNISOLONE. [Concomitant]
     Active Substance: METHYLPREDNISOLONE
     Dosage: 40 MILLIGRAM, SINGLE
     Route: 040
     Dates: start: 20210809, end: 20210809
  7. PRIVIGEN [Suspect]
     Active Substance: HUMAN IMMUNOGLOBULIN G
     Indication: POSTOPERATIVE CARE
     Dosage: 50 GRAM IN 500 ML, SINGLE
     Route: 041
     Dates: start: 20210809, end: 20210809

REACTIONS (4)
  - Urticaria [Unknown]
  - Off label use [Unknown]
  - Rash [Unknown]
  - No adverse event [Unknown]

NARRATIVE: CASE EVENT DATE: 20210809
